FAERS Safety Report 22131227 (Version 1)
Quarter: 2023Q1

REPORT INFORMATION
  Report Type: Spontaneous
  Country: US (occurrence: US)
  Receive Date: 20230323
  Receipt Date: 20230323
  Transmission Date: 20230418
  Serious: No
  Sender: FDA-Public Use
  Company Number: US-ALLERGAN-2241055US

PATIENT
  Age: 69 Year
  Sex: Female
  Weight: 81.646 kg

DRUGS (2)
  1. FLUOROMETHOLONE [Suspect]
     Active Substance: FLUOROMETHOLONE
     Indication: Dry eye
     Dosage: 2 DROPS FOR 2 WEEKS
     Route: 047
     Dates: start: 20221209, end: 20221211
  2. UNSPECIFIED INGREDIENT [Concomitant]
     Active Substance: UNSPECIFIED INGREDIENT
     Indication: Hypertension

REACTIONS (6)
  - Throat tightness [Not Recovered/Not Resolved]
  - Oropharyngeal pain [Not Recovered/Not Resolved]
  - Feeling abnormal [Not Recovered/Not Resolved]
  - Dysphagia [Unknown]
  - Insomnia [Unknown]
  - Ocular rosacea [Unknown]

NARRATIVE: CASE EVENT DATE: 20221201
